FAERS Safety Report 7071508-8 (Version None)
Quarter: 2010Q4

REPORT INFORMATION
  Report Type: 
  Country: None (occurrence: None)
  Receive Date: 20101029
  Receipt Date: 20090914
  Transmission Date: 20110411
  Serious: No
  Sender: FDA-Public Use
  Company Number: A0807269A

PATIENT
  Age: 60 Year
  Sex: Female

DRUGS (3)
  1. ADVAIR DISKUS 100/50 [Suspect]
     Indication: CHRONIC OBSTRUCTIVE PULMONARY DISEASE
     Dosage: 1PUFF TWICE PER DAY
     Route: 055
  2. ALBUTEROL [Concomitant]
  3. PRILOSEC [Concomitant]

REACTIONS (10)
  - CANDIDIASIS [None]
  - COUGH [None]
  - EAR INFECTION [None]
  - GLOSSODYNIA [None]
  - IMMUNE SYSTEM DISORDER [None]
  - INTRAOCULAR PRESSURE INCREASED [None]
  - NASAL INFLAMMATION [None]
  - ORAL HERPES [None]
  - RHINITIS [None]
  - SKIN FISSURES [None]
